FAERS Safety Report 6056170-5 (Version None)
Quarter: 2009Q1

REPORT INFORMATION
  Report Type: 
  Country: None (occurrence: None)
  Receive Date: 20090126
  Receipt Date: 20090126
  Transmission Date: 20090719
  Serious: No
  Sender: FDA-Public Use
  Company Number: None

PATIENT
  Sex: Male
  Weight: 117.3 kg

DRUGS (2)
  1. GAMUNEX [Suspect]
     Indication: IMMUNODEFICIENCY COMMON VARIABLE
     Dosage: 65 GM Q 3 WK IV
     Route: 042
     Dates: start: 20090121
  2. GAMUNEX [Suspect]

REACTIONS (1)
  - LIP SWELLING [None]
